FAERS Safety Report 7059060-4 (Version None)
Quarter: 2010Q4

REPORT INFORMATION
  Report Type: 
  Country: None (occurrence: None)
  Receive Date: 20101025
  Receipt Date: 20101013
  Transmission Date: 20110411
  Serious: No
  Sender: FDA-Public Use
  Company Number: US-BIOGENIDEC-2010BI020711

PATIENT
  Age: 41 Year
  Sex: Male

DRUGS (1)
  1. TYSABRI [Suspect]
     Indication: MULTIPLE SCLEROSIS
     Route: 042
     Dates: start: 20100428, end: 20100101

REACTIONS (5)
  - BLISTER [None]
  - HEADACHE [None]
  - HYPERSENSITIVITY [None]
  - NASOPHARYNGITIS [None]
  - RASH [None]
